FAERS Safety Report 4908105-3 (Version None)
Quarter: 2006Q1

REPORT INFORMATION
  Report Type: 
  Country: None (occurrence: None)
  Receive Date: 20060210
  Receipt Date: 20060207
  Transmission Date: 20060701
  Serious: Yes (Life-Threatening)
  Sender: FDA-Public Use
  Company Number: 2006CG00266

PATIENT
  Age: 24 Year
  Sex: Female

DRUGS (5)
  1. DIPRIVAN [Suspect]
     Indication: INDUCTION OF ANAESTHESIA
     Route: 042
     Dates: start: 20051123, end: 20051123
  2. NIMBEX [Suspect]
     Indication: INDUCTION OF ANAESTHESIA
     Route: 042
     Dates: start: 20051123, end: 20051123
  3. SUFENTA [Suspect]
     Indication: INDUCTION OF ANAESTHESIA
     Route: 042
     Dates: start: 20051123, end: 20051123
  4. SEVORANE [Suspect]
     Indication: MAINTENANCE OF ANAESTHESIA
     Route: 055
     Dates: start: 20051123, end: 20051123
  5. AUGMENTIN '125' [Concomitant]
     Indication: PROPHYLAXIS
     Dates: start: 20051123, end: 20051123

REACTIONS (7)
  - BLOOD CREATINE PHOSPHOKINASE INCREASED [None]
  - BLOOD PRESSURE DECREASED [None]
  - HEART RATE INCREASED [None]
  - HYPERCAPNIA [None]
  - HYPERTHERMIA MALIGNANT [None]
  - MYALGIA [None]
  - MYOGLOBIN BLOOD INCREASED [None]
